FAERS Safety Report 9028754 (Version 2)
Quarter: 2013Q2

REPORT INFORMATION
  Report Type: Spontaneous
  Country: US (occurrence: US)
  Receive Date: 20130124
  Receipt Date: 20130408
  Transmission Date: 20140414
  Serious: No
  Sender: FDA-Public Use
  Company Number: US-PFIZER INC-2013028370

PATIENT
  Age: 33 Year
  Sex: Female
  Weight: 111 kg

DRUGS (6)
  1. LYRICA [Suspect]
     Indication: FIBROMYALGIA
     Dosage: 75 MG, 2X/DAY
     Dates: start: 201301, end: 201301
  2. BENADRYL [Suspect]
     Indication: RASH
     Dosage: UNK
     Dates: start: 201301, end: 201301
  3. CORTISONE [Suspect]
     Indication: RASH
     Dosage: UNK
     Dates: start: 201301
  4. FLEXERIL [Suspect]
     Dosage: 10 MG, AS NEEDED
  5. METFORMIN [Concomitant]
     Indication: GLUCOSE TOLERANCE IMPAIRED
     Dosage: 850 MG, 2X/DAY
  6. ZOLOFT [Concomitant]
     Dosage: 50 MG, 2X/DAY

REACTIONS (4)
  - Rash [Recovered/Resolved]
  - Pruritus [Recovered/Resolved]
  - Drug ineffective [Unknown]
  - Drug administration error [Unknown]
